FAERS Safety Report 16709968 (Version 2)
Quarter: 2019Q3

REPORT INFORMATION
  Report Type: Spontaneous
  Country: US (occurrence: US)
  Receive Date: 20190816
  Receipt Date: 20190819
  Transmission Date: 20191004
  Serious: Yes (Death, Hospitalization, Other)
  Sender: FDA-Public Use
  Company Number: US-PFIZER INC-2019342082

PATIENT
  Age: 86 Year
  Sex: Male
  Weight: 58.97 kg

DRUGS (1)
  1. XELJANZ XR [Suspect]
     Active Substance: TOFACITINIB CITRATE
     Indication: RHEUMATOID ARTHRITIS
     Dosage: 11 MG, 1X/DAY
     Route: 048
     Dates: start: 2018

REACTIONS (2)
  - Renal failure [Fatal]
  - Aortic dissection [Fatal]

NARRATIVE: CASE EVENT DATE: 201908
